FAERS Safety Report 7895594-8 (Version None)
Quarter: 2011Q4

REPORT INFORMATION
  Report Type: 
  Country: None (occurrence: None)
  Receive Date: 20111024
  Receipt Date: 20110719
  Transmission Date: 20120403
  Serious: Yes (Other)
  Sender: FDA-Public Use
  Company Number: 2011SP033879

PATIENT

DRUGS (2)
  1. INTERFERON [Suspect]
     Indication: BLADDER CANCER
  2. TICE BCG [Suspect]
     Indication: BLADDER CANCER

REACTIONS (1)
  - NEOPLASM RECURRENCE [None]
